FAERS Safety Report 24677212 (Version 1)
Quarter: 2024Q4

REPORT INFORMATION
  Report Type: Spontaneous
  Country: HR (occurrence: HR)
  Receive Date: 20241129
  Receipt Date: 20241129
  Transmission Date: 20250115
  Serious: Yes (Other)
  Sender: NOVARTIS
  Company Number: HR-002147023-NVSC2024HR225024

PATIENT
  Age: 33 Year
  Sex: Male

DRUGS (1)
  1. NILOTINIB [Suspect]
     Active Substance: NILOTINIB
     Indication: Chronic myeloid leukaemia
     Dosage: 400 MG (X2)
     Route: 065
     Dates: start: 201711, end: 202110

REACTIONS (1)
  - Angiopathy [Unknown]

NARRATIVE: CASE EVENT DATE: 20210101
